FAERS Safety Report 6795930-X (Version None)
Quarter: 2010Q2

REPORT INFORMATION
  Report Type: 
  Country: None (occurrence: None)
  Receive Date: 20100625
  Receipt Date: 20100616
  Transmission Date: 20101027
  Serious: Yes (Other)
  Sender: FDA-Public Use
  Company Number: B0659375A

PATIENT
  Sex: Female

DRUGS (4)
  1. LAMICTAL [Suspect]
     Indication: EPILEPSY
     Dosage: 25MG ALTERNATE DAYS
     Route: 048
     Dates: start: 20100419, end: 20100601
  2. EXCEGRAN [Concomitant]
     Indication: EPILEPSY
     Dosage: 200MG PER DAY
     Route: 048
     Dates: start: 20010822, end: 20100601
  3. MYSTAN [Concomitant]
     Indication: EPILEPSY
     Dosage: 20MG PER DAY
     Route: 048
     Dates: start: 20001213, end: 20100418
  4. DEPAKENE [Concomitant]
     Indication: EPILEPSY
     Dosage: 1200MG PER DAY
     Route: 048
     Dates: start: 20001019, end: 20010701

REACTIONS (7)
  - DIPLOPIA [None]
  - DISCOMFORT [None]
  - EPILEPSY [None]
  - GRAND MAL CONVULSION [None]
  - LOSS OF CONSCIOUSNESS [None]
  - SKIN DISCOMFORT [None]
  - VISUAL IMPAIRMENT [None]
